FAERS Safety Report 9134061 (Version 2)
Quarter: 2013Q3

REPORT INFORMATION
  Report Type: Report from Study
  Country: UG (occurrence: UG)
  Receive Date: 20130304
  Receipt Date: 20130919
  Transmission Date: 20140515
  Serious: Yes (Hospitalization)
  Sender: FDA-Public Use
  Company Number: UG-009507513-1302UGA012458

PATIENT
  Age: 45 Year
  Sex: Female

DRUGS (3)
  1. RALTEGRAVIR POTASSIUM [Suspect]
     Indication: HIV INFECTION
     Dosage: UNK
     Dates: start: 20110419
  2. LOPINAVIR (+) RITONAVIR [Suspect]
     Indication: HIV INFECTION
     Dosage: UNK
     Dates: start: 20110419
  3. SEPTRIN [Concomitant]
     Dosage: UNK
     Dates: start: 20090225

REACTIONS (1)
  - Tibia fracture [Recovered/Resolved]
